FAERS Safety Report 11758213 (Version 1)
Quarter: 2015Q4

REPORT INFORMATION
  Report Type: Spontaneous
  Country: US (occurrence: US)
  Receive Date: 20151120
  Receipt Date: 20151120
  Transmission Date: 20160304
  Serious: No
  Sender: FDA-Public Use
  Company Number: US-PERRIGO-15US008962

PATIENT
  Age: 82 Year
  Sex: Female
  Weight: 43.99 kg

DRUGS (3)
  1. CHILDRENS ACETAMINOPHEN [Concomitant]
     Active Substance: ACETAMINOPHEN
     Indication: PAIN
     Dosage: UNK
     Route: 065
  2. FAMOTIDINE. [Suspect]
     Active Substance: FAMOTIDINE
     Dosage: 20 MG, SINGLE, VIA FEEDING TUBE
     Route: 051
     Dates: start: 20150827, end: 20150827
  3. FAMOTIDINE. [Suspect]
     Active Substance: FAMOTIDINE
     Indication: PROPHYLAXIS
     Dosage: 20 MG, SINGLE, VIA FEEDING TUBE
     Route: 051
     Dates: start: 20150826, end: 20150826

REACTIONS (3)
  - Dizziness [Unknown]
  - Wrong technique in product usage process [Recovered/Resolved]
  - Incorrect route of drug administration [Recovered/Resolved]

NARRATIVE: CASE EVENT DATE: 20150826
